APPROVED DRUG PRODUCT: DOXAZOSIN MESYLATE
Active Ingredient: DOXAZOSIN MESYLATE
Strength: EQ 2MG BASE
Dosage Form/Route: TABLET;ORAL
Application: A076161 | Product #002
Applicant: STRIDES PHARMA INTERNATIONAL AG
Approved: Jun 10, 2004 | RLD: No | RS: No | Type: DISCN